FAERS Safety Report 8455096-7 (Version None)
Quarter: 2012Q2

REPORT INFORMATION
  Report Type: 
  Country: None (occurrence: None)
  Receive Date: 20120613
  Receipt Date: 20120529
  Transmission Date: 20120825
  Serious: Yes (Other)
  Sender: FDA-Public Use
  Company Number: B0806851A

PATIENT
  Sex: 0

DRUGS (3)
  1. MELPHALAN HYDROCHLORIDE [Suspect]
     Indication: MULTIPLE MYELOMA
     Dosage: 200 MG/M2/
  2. FILGRASTIM (FORMULATION UNKNOWN) (FILGRASTIM) [Suspect]
     Indication: PRODUCT USED FOR UNKNOWN INDICATION
     Dosage: 5 MCG/KG /PER DAY / SUBCUTANEOUS
     Route: 058
  3. PALIFERMIN (FORMULATION UNKNOWN) (PALIFERMIN) [Suspect]
     Indication: MULTIPLE MYELOMA
     Dosage: 60 MCG/KG PER DAY/ INTRAVENOUS
     Route: 042

REACTIONS (3)
  - DERMATITIS BULLOUS [None]
  - CARDIAC FAILURE CONGESTIVE [None]
  - INTERSTITIAL LUNG DISEASE [None]
